FAERS Safety Report 6183240-3 (Version None)
Quarter: 2009Q2

REPORT INFORMATION
  Report Type: 
  Country: None (occurrence: None)
  Receive Date: 20090507
  Receipt Date: 20090504
  Transmission Date: 20091009
  Serious: Yes (Hospitalization)
  Sender: FDA-Public Use
  Company Number: US-GILEAD-2009-0021788

PATIENT
  Sex: Male

DRUGS (11)
  1. LETAIRIS [Suspect]
     Indication: PULMONARY ARTERIAL HYPERTENSION
     Route: 048
     Dates: start: 20090501
  2. LETAIRIS [Suspect]
     Route: 048
     Dates: start: 20090107, end: 20090420
  3. WARFARIN SODIUM [Concomitant]
  4. NIFEDIPINE [Concomitant]
  5. DIOVAN [Concomitant]
  6. REVATIO [Concomitant]
     Indication: PULMONARY ARTERIAL HYPERTENSION
  7. NASONEX [Concomitant]
  8. ALPRAZOLAM [Concomitant]
  9. ALLOPURINOL [Concomitant]
  10. FOLIC ACID [Concomitant]
  11. KLOR-CON [Concomitant]

REACTIONS (2)
  - ANAEMIA [None]
  - CEREBROVASCULAR ACCIDENT [None]
